FAERS Safety Report 12199410 (Version 2)
Quarter: 2016Q2

REPORT INFORMATION
  Report Type: Spontaneous
  Country: US (occurrence: US)
  Receive Date: 20160322
  Receipt Date: 20160401
  Transmission Date: 20160815
  Serious: No
  Sender: FDA-Public Use
  Company Number: US-PFIZER INC-2016140647

PATIENT
  Sex: Female

DRUGS (3)
  1. TIKOSYN [Suspect]
     Active Substance: DOFETILIDE
     Dosage: UNK
     Route: 065
  2. APIXABAN [Suspect]
     Active Substance: APIXABAN
     Dosage: UNK
     Route: 065
  3. LASIX [Suspect]
     Active Substance: FUROSEMIDE
     Dosage: UNK
     Route: 065

REACTIONS (1)
  - Feeling abnormal [Unknown]
